APPROVED DRUG PRODUCT: SOLTAMOX
Active Ingredient: TAMOXIFEN CITRATE
Strength: EQ 20MG BASE/10ML
Dosage Form/Route: SOLUTION;ORAL
Application: N021807 | Product #001
Applicant: MAYNE PHARMA COMMERCIAL LLC
Approved: Oct 29, 2005 | RLD: Yes | RS: Yes | Type: RX